FAERS Safety Report 6724425-4 (Version None)
Quarter: 2010Q2

REPORT INFORMATION
  Report Type: 
  Country: None (occurrence: None)
  Receive Date: 20100513
  Receipt Date: 20100506
  Transmission Date: 20101027
  Serious: Yes (Hospitalization)
  Sender: FDA-Public Use
  Company Number: US-JNJCH-2010011272

PATIENT
  Age: 69 Year
  Sex: Female
  Weight: 56.7 kg

DRUGS (7)
  1. CHILDREN'S BENADRYL ALLERGY [Suspect]
     Indication: HYPERSENSITIVITY
     Dosage: TEXT:ONCE A DAY AS NEEDED
     Route: 048
     Dates: start: 20091120, end: 20091201
  2. CHILDREN'S BENADRYL ALLERGY [Suspect]
     Indication: HYPERSENSITIVITY
     Dosage: TEXT:UNKNOWN
     Route: 048
  3. VITAMIN E [Concomitant]
     Indication: SUPPLEMENTATION THERAPY
     Dosage: TEXT:1X DAY
     Route: 065
  4. VITAMIN B COMPLEX CAP [Concomitant]
     Indication: SUPPLEMENTATION THERAPY
     Dosage: TEXT:1X DAY
     Route: 065
  5. BETACAROTENE [Concomitant]
     Indication: SUPPLEMENTATION THERAPY
     Dosage: TEXT:1X DAY
     Route: 065
  6. COD-LIVER OIL [Concomitant]
     Indication: SUPPLEMENTATION THERAPY
     Dosage: TEXT:OCCASIONALLY
     Route: 065
  7. BUFFERIN [Concomitant]
     Indication: SUPPLEMENTATION THERAPY
     Route: 065

REACTIONS (2)
  - LIVER ABSCESS [None]
  - PRODUCT QUALITY ISSUE [None]
